FAERS Safety Report 16727547 (Version 2)
Quarter: 2019Q3

REPORT INFORMATION
  Report Type: Spontaneous
  Country: GR (occurrence: GR)
  Receive Date: 20190822
  Receipt Date: 20190828
  Transmission Date: 20191005
  Serious: Yes (Death, Life-Threatening, Hospitalization)
  Sender: FDA-Public Use
  Company Number: GR-ROCHE-2378216

PATIENT
  Age: 58 Year
  Sex: Female

DRUGS (2)
  1. PREDNISOLONE. [Concomitant]
     Active Substance: PREDNISOLONE
     Indication: STEVENS-JOHNSON SYNDROME
     Dosage: 1 MG/KG, UNK
     Route: 065
  2. MYCOPHENOLATE MOFETIL. [Suspect]
     Active Substance: MYCOPHENOLATE MOFETIL
     Indication: AUTOIMMUNE MYOCARDITIS
     Dosage: UNK
     Route: 065

REACTIONS (5)
  - Cardiac failure [Fatal]
  - Ventricular arrhythmia [Fatal]
  - Intentional product use issue [Unknown]
  - Off label use [Unknown]
  - Autoimmune myocarditis [Fatal]
